FAERS Safety Report 6945961-1 (Version None)
Quarter: 2010Q3

REPORT INFORMATION
  Report Type: 
  Country: None (occurrence: None)
  Receive Date: 20100824
  Receipt Date: 20100818
  Transmission Date: 20110219
  Serious: Yes (Other)
  Sender: FDA-Public Use
  Company Number: 2010SP040709

PATIENT
  Age: 58 Year
  Sex: Male
  Weight: 78 kg

DRUGS (3)
  1. PEG-INTRON [Suspect]
     Dates: start: 20100511, end: 20100802
  2. RIBAVIRIN [Suspect]
     Indication: HEPATITIS C
     Dates: start: 20100511, end: 20100802
  3. DEXAMETHASONE (CON.) [Concomitant]

REACTIONS (3)
  - HAEMOPTYSIS [None]
  - PYREXIA [None]
  - WEIGHT INCREASED [None]
